FAERS Safety Report 16700211 (Version 2)
Quarter: 2021Q2

REPORT INFORMATION
  Report Type: Report from Study
  Country: US (occurrence: US)
  Receive Date: 20190814
  Receipt Date: 20210504
  Transmission Date: 20210716
  Serious: Yes (Other)
  Sender: FDA-Public Use
  Company Number: US-AMGEN-USASP2019125882

PATIENT
  Age: 43 Year
  Sex: Female

DRUGS (2)
  1. ENBREL [Suspect]
     Active Substance: ETANERCEPT
     Indication: RHEUMATOID ARTHRITIS
     Dosage: 50 MILLIGRAM, QWK
     Route: 065
     Dates: start: 2004
  2. ENBREL [Suspect]
     Active Substance: ETANERCEPT
     Dosage: 50 MILLIGRAM, QWK
     Route: 065
     Dates: end: 202012

REACTIONS (11)
  - Hip arthroplasty [Unknown]
  - Foot deformity [Unknown]
  - Photophobia [Unknown]
  - Therapeutic product effect decreased [Unknown]
  - Finger deformity [Unknown]
  - Gait disturbance [Unknown]
  - Corneal perforation [Unknown]
  - Cataract [Unknown]
  - Dry eye [Unknown]
  - Hand deformity [Unknown]
  - Product storage error [Unknown]

NARRATIVE: CASE EVENT DATE: 2009
